FAERS Safety Report 9231036 (Version 2)
Quarter: 2013Q2

REPORT INFORMATION
  Report Type: Spontaneous
  Country: BR (occurrence: BR)
  Receive Date: 20130415
  Receipt Date: 20130415
  Transmission Date: 20140414
  Serious: Yes (Death, Hospitalization)
  Sender: FDA-Public Use
  Company Number: BR-ASTRAZENECA-2012SE72642

PATIENT
  Age: 70 Year
  Sex: Male
  Weight: 75 kg

DRUGS (6)
  1. QUETIAPINE HEMIFUMARATE [Suspect]
     Indication: SCHIZOPHRENIA
     Route: 048
  2. QUETIAPINE HEMIFUMARATE [Suspect]
     Indication: SCHIZOPHRENIA
     Dosage: GENERIC, 150 MG
     Route: 048
     Dates: start: 2012, end: 201209
  3. QUETIAPINE HEMIFUMARATE [Suspect]
     Indication: SCHIZOPHRENIA
     Dosage: 100 MG BY MORNING, 100 MG AT AFTERNOON AND 200 MG AT NIGHT
     Route: 048
     Dates: start: 2012
  4. RIVOTRIL [Concomitant]
     Indication: INSOMNIA
     Route: 048
  5. RIVOTRIL [Concomitant]
     Indication: INSOMNIA
     Dosage: PRN
     Route: 048
  6. ALOIS [Concomitant]
     Route: 048

REACTIONS (3)
  - Choking [Fatal]
  - Schizophrenia [Recovered/Resolved]
  - Schizophrenia [Unknown]
